FAERS Safety Report 9745161 (Version 4)
Quarter: 2014Q1

REPORT INFORMATION
  Report Type: Report from Study
  Country: CA (occurrence: CA)
  Receive Date: 20131211
  Receipt Date: 20140109
  Transmission Date: 20141002
  Serious: Yes (Hospitalization)
  Sender: FDA-Public Use
  Company Number: CA-ROCHE-1317967

PATIENT
  Age: 64 Year
  Sex: Female
  Weight: 63 kg

DRUGS (8)
  1. AVASTIN [Suspect]
     Indication: OVARIAN CANCER
     Route: 042
     Dates: start: 20130925
  2. METFORMIN [Concomitant]
     Route: 065
  3. HYDROMORPHONE [Concomitant]
     Route: 065
  4. SYNTHROID [Concomitant]
  5. ONDANSETRON [Concomitant]
     Route: 065
  6. HERBAL SUPPLEMENT [Concomitant]
  7. HMF FORTE [Concomitant]
  8. PECTASOL [Concomitant]

REACTIONS (1)
  - Intestinal obstruction [Recovered/Resolved]
